FAERS Safety Report 7371673-9 (Version None)
Quarter: 2011Q1

REPORT INFORMATION
  Report Type: 
  Country: None (occurrence: None)
  Receive Date: 20110323
  Receipt Date: 20110318
  Transmission Date: 20110831
  Serious: Yes (Hospitalization)
  Sender: FDA-Public Use
  Company Number: DL2011-0221

PATIENT
  Age: 31 Year
  Sex: Female

DRUGS (3)
  1. DOXYCYCLINE [Concomitant]
  2. MIFEPREX [Suspect]
     Indication: ABORTION INDUCED
     Dosage: 200 MG, ORAL
     Route: 048
     Dates: start: 20110131
  3. MISOPROSTOL [Suspect]
     Dosage: 800 MCG, BUCCAL
     Route: 002
     Dates: start: 20110201

REACTIONS (5)
  - PELVIC INFLAMMATORY DISEASE [None]
  - VAGINITIS BACTERIAL [None]
  - FUNGAL INFECTION [None]
  - ENDOMETRITIS [None]
  - ABORTION INCOMPLETE [None]
